FAERS Safety Report 9165439 (Version 1)
Quarter: 2013Q1

REPORT INFORMATION
  Report Type: Other
  Country: US (occurrence: US)
  Receive Date: 20130315
  Receipt Date: 20130315
  Transmission Date: 20140127
  Serious: Yes (Other)
  Sender: FDA-Public Use
  Company Number: US-SHIRE-ALL1-2013-01409

PATIENT
  Sex: Female

DRUGS (1)
  1. FIRAZYR [Suspect]
     Indication: HEREDITARY ANGIOEDEMA
     Dosage: 30 MG, UNKNOWN
     Route: 058

REACTIONS (3)
  - Facial bones fracture [Recovered/Resolved]
  - Thrombosis [Recovered/Resolved]
  - Swelling [Not Recovered/Not Resolved]
